FAERS Safety Report 8383976-X (Version None)
Quarter: 2012Q2

REPORT INFORMATION
  Report Type: 
  Country: None (occurrence: None)
  Receive Date: 20120524
  Receipt Date: 20120522
  Transmission Date: 20120825
  Serious: Yes (Other)
  Sender: FDA-Public Use
  Company Number: US-GLAXOSMITHKLINE-A0978509A

PATIENT
  Age: 75 Year
  Sex: Female

DRUGS (1)
  1. ALLI [Suspect]
     Indication: CONSTIPATION
     Route: 048

REACTIONS (7)
  - CONSTIPATION [None]
  - HAEMORRHOIDS [None]
  - RECTAL TENESMUS [None]
  - RECTAL HAEMORRHAGE [None]
  - OFF LABEL USE [None]
  - THERAPEUTIC RESPONSE UNEXPECTED [None]
  - FAECES HARD [None]
